FAERS Safety Report 26120018 (Version 1)
Quarter: 2025Q4

REPORT INFORMATION
  Report Type: Spontaneous
  Country: US (occurrence: US)
  Receive Date: 20251204
  Receipt Date: 20251204
  Transmission Date: 20260118
  Serious: Yes (Other)
  Sender: RANBAXY
  Company Number: US-SUN PHARMACEUTICAL INDUSTRIES INC-2025R1-539302

PATIENT
  Age: 57 Year
  Sex: Female

DRUGS (1)
  1. BUPROPION [Suspect]
     Active Substance: BUPROPION
     Indication: Depressive symptom
     Dosage: 100 MILLIGRAM
     Route: 065

REACTIONS (6)
  - Idiosyncratic drug reaction [Recovering/Resolving]
  - Fatigue [Recovering/Resolving]
  - Oedema [Recovering/Resolving]
  - Sensitive skin [Recovering/Resolving]
  - Polyuria [Recovering/Resolving]
  - Polydipsia [Recovering/Resolving]
